FAERS Safety Report 17772419 (Version 2)
Quarter: 2020Q2

REPORT INFORMATION
  Report Type: Report from Study
  Country: IT (occurrence: IT)
  Receive Date: 20200512
  Receipt Date: 20200514
  Transmission Date: 20200714
  Serious: Yes (Death, Other)
  Sender: FDA-Public Use
  Company Number: IT-INCYTE CORPORATION-2020IN004123

PATIENT

DRUGS (16)
  1. ROCEFIN [Suspect]
     Active Substance: CEFTRIAXONE SODIUM
     Indication: COVID-19
     Dosage: 2 G, QD (1 BOTTLE)
     Route: 030
     Dates: start: 20200402
  2. RINGERS LACTATE [Concomitant]
     Active Substance: CALCIUM CHLORIDE\POTASSIUM CHLORIDE\SODIUM LACTATE
     Indication: PRODUCT USED FOR UNKNOWN INDICATION
     Dosage: 500 MG, QD
     Route: 042
  3. TAZOCIN [Concomitant]
     Active Substance: PIPERACILLIN SODIUM\TAZOBACTAM SODIUM
     Indication: PRODUCT USED FOR UNKNOWN INDICATION
     Dosage: 12 FL (4G+0.500G), QD
     Route: 042
  4. NORADRENALINA [NOREPINEPHRINE HYDROCHLORIDE] [Concomitant]
     Indication: PRODUCT USED FOR UNKNOWN INDICATION
     Dosage: 4 ML/H (10 F)
     Route: 042
  5. VICI [Concomitant]
     Indication: PRODUCT USED FOR UNKNOWN INDICATION
     Dosage: 1 DF, QD (5F)
     Route: 030
  6. EUTIROX [Concomitant]
     Active Substance: LEVOTHYROXINE SODIUM
     Indication: PRODUCT USED FOR UNKNOWN INDICATION
     Dosage: 1 DF, QD (500CPR, 125 MCG)
     Route: 048
  7. INC424 [Suspect]
     Active Substance: RUXOLITINIB
     Indication: COVID-19
     Dosage: 5 MG, BID
     Route: 048
     Dates: start: 20200409
  8. PREZISTA [Suspect]
     Active Substance: DARUNAVIR ETHANOLATE
     Indication: COVID-19
     Dosage: 800 MG, QD
     Route: 065
     Dates: start: 20200331
  9. ANTRA [OMEPRAZOLE MAGNESIUM] [Concomitant]
     Indication: PRODUCT USED FOR UNKNOWN INDICATION
     Dosage: 40 MG, QD (INFUS, 1 FL)
     Route: 042
  10. INC424 [Suspect]
     Active Substance: RUXOLITINIB
     Indication: ACUTE RESPIRATORY DISTRESS SYNDROME
  11. PLASIL [METOCLOPRAMIDE HYDROCHLORIDE] [Concomitant]
     Active Substance: METOCLOPRAMIDE HYDROCHLORIDE
     Indication: PRODUCT USED FOR UNKNOWN INDICATION
     Dosage: 1 DF, QD (INET 5F 2 ML)
     Route: 042
  12. ALBUMINE BAXTER [Concomitant]
     Active Substance: ALBUMIN HUMAN
     Indication: PRODUCT USED FOR UNKNOWN INDICATION
     Dosage: 50 G/ML, QD (1 FL, 250 ML)
     Route: 042
  13. OXEPA [Concomitant]
     Indication: PRODUCT USED FOR UNKNOWN INDICATION
     Dosage: 40 ML/H
     Route: 042
  14. FLUIMUCIL [Concomitant]
     Active Substance: ACETYLCYSTEINE
     Indication: PRODUCT USED FOR UNKNOWN INDICATION
     Dosage: 1 DF, QD (AER, 10F)
     Route: 055
  15. PLAQUENIL [Suspect]
     Active Substance: HYDROXYCHLOROQUINE SULFATE
     Indication: COVID-19
     Dosage: 1 DF, BID
     Route: 065
     Dates: start: 20200331
  16. CLEXANE [Suspect]
     Active Substance: ENOXAPARIN SODIUM
     Indication: COVID-19
     Dosage: 0.6 ML, QD (6 SYRINGE)
     Route: 065
     Dates: start: 20200331

REACTIONS (5)
  - Respiratory failure [Not Recovered/Not Resolved]
  - Cardiac arrest [Fatal]
  - Acute respiratory distress syndrome [Not Recovered/Not Resolved]
  - Multiple organ dysfunction syndrome [Unknown]
  - Sepsis [Fatal]
